FAERS Safety Report 9494256 (Version 5)
Quarter: 2013Q4

REPORT INFORMATION
  Report Type: Report from Study
  Country: JP (occurrence: JP)
  Receive Date: 20130903
  Receipt Date: 20131129
  Transmission Date: 20140711
  Serious: Yes (Hospitalization, Disabling)
  Sender: FDA-Public Use
  Company Number: JP-ROCHE-1267011

PATIENT
  Age: 65 Year
  Sex: Male
  Weight: 69.3 kg

DRUGS (25)
  1. RITUXIMAB [Suspect]
     Indication: B-CELL LYMPHOMA
     Dosage: ON 20/AUG/2013 HE RECEIVED MOST RECENT DOSE (686 ML) TO THE CONCENTRATION OF 1 MG/ML.
     Route: 042
     Dates: start: 20130709, end: 20130930
  2. CYCLOPHOSPHAMIDE [Suspect]
     Indication: B-CELL LYMPHOMA
     Dosage: ON 21/AUG/2013 HE RECEIVED MOST RECENT DOSE (1370 MG.)
     Route: 042
     Dates: start: 20130710, end: 20130930
  3. DOXORUBICIN [Suspect]
     Indication: B-CELL LYMPHOMA
     Dosage: ON 21/AUG/2013 HE RECEIVED MOST RECENT DOSE (91 MG.)
     Route: 042
     Dates: start: 20130710, end: 20130930
  4. VINCRISTINE [Suspect]
     Indication: B-CELL LYMPHOMA
     Dosage: ON 21/AUG/2013 HE RECEIVED MOST RECENT DOSE (1 MG.)
     Route: 050
     Dates: end: 20130930
  5. PREDNISOLONE [Suspect]
     Indication: B-CELL LYMPHOMA
     Dosage: ON 24/AUG/2013 HE RECEIVED MOST RECENT DOSE (100 MG.)
     Route: 048
     Dates: start: 20130709, end: 20130930
  6. LOXOPROFEN SODIUM [Concomitant]
     Indication: SPINAL COLUMN STENOSIS
  7. ETIZOLAM [Concomitant]
     Indication: INSOMNIA
  8. INDOMETACIN [Concomitant]
     Indication: SPINAL COLUMN STENOSIS
  9. FAMOTIDINE [Concomitant]
     Indication: GASTRITIS
     Route: 065
     Dates: start: 20130708
  10. BAKTAR [Concomitant]
     Indication: INFECTION
     Route: 065
     Dates: start: 20130708
  11. ALLOPURINOL [Concomitant]
     Indication: TUMOUR LYSIS SYNDROME
     Route: 065
     Dates: start: 20130708, end: 20130723
  12. PANTETHINE [Concomitant]
     Indication: CONSTIPATION
     Route: 065
     Dates: start: 20130710
  13. MAGNESIUM OXIDE [Concomitant]
     Indication: CONSTIPATION
     Route: 065
     Dates: start: 20130710
  14. BACLOFEN [Concomitant]
     Indication: HICCUPS
     Route: 065
     Dates: start: 20130711
  15. SENNOSIDE [Concomitant]
     Indication: CONSTIPATION
     Route: 065
     Dates: start: 20130712
  16. LACTULOSE [Concomitant]
     Indication: CONSTIPATION
     Route: 065
     Dates: start: 20130712
  17. SODIUM PICOSULFATE [Concomitant]
     Indication: CONSTIPATION
     Route: 065
     Dates: start: 20130718
  18. DEXAMETHASONE [Concomitant]
     Indication: STOMATITIS
     Route: 065
     Dates: start: 20130724
  19. REBAMIPIDE [Concomitant]
     Indication: GASTRITIS
     Route: 065
     Dates: start: 20130722
  20. ACETAMINOPHEN [Concomitant]
     Indication: PREMEDICATION
     Route: 065
     Dates: start: 20130709
  21. CLEMASTINE FUMARATE [Concomitant]
     Indication: PREMEDICATION
     Route: 065
     Dates: start: 20130709
  22. GRANISETRON HYDROCHLORIDE [Concomitant]
     Indication: VOMITING
     Route: 065
     Dates: start: 20130710
  23. GRANISETRON HYDROCHLORIDE [Concomitant]
     Indication: NAUSEA
  24. LENOGRASTIM [Concomitant]
     Indication: NEUTROPENIA
     Route: 065
     Dates: start: 20130722
  25. BISACODYL [Concomitant]
     Indication: CONSTIPATION
     Route: 065
     Dates: start: 20130712, end: 20130718

REACTIONS (1)
  - Peroneal muscular atrophy [Not Recovered/Not Resolved]
